FAERS Safety Report 16243860 (Version 2)
Quarter: 2019Q2

REPORT INFORMATION
  Report Type: Spontaneous
  Country: US (occurrence: US)
  Receive Date: 20190426
  Receipt Date: 20190520
  Transmission Date: 20190711
  Serious: No
  Sender: FDA-Public Use
  Company Number: US-PFIZER INC-2019172666

PATIENT
  Age: 57 Year
  Sex: Female
  Weight: 92.99 kg

DRUGS (3)
  1. LYRICA [Suspect]
     Active Substance: PREGABALIN
     Dosage: UNK (ONLY TAKING ONE)
  2. LYRICA [Suspect]
     Active Substance: PREGABALIN
     Indication: FIBROMYALGIA
     Dosage: UNK
  3. LYRICA [Suspect]
     Active Substance: PREGABALIN
     Indication: PAIN
     Dosage: 150 MG, 2X/DAY (ONCE IN THE MORNING AND ONCE IN THE EVENING)
     Route: 048
     Dates: start: 2018

REACTIONS (4)
  - Irritability [Unknown]
  - Feeling abnormal [Not Recovered/Not Resolved]
  - Withdrawal syndrome [Unknown]
  - Intentional product misuse [Unknown]
